FAERS Safety Report 10128566 (Version 3)
Quarter: 2017Q2

REPORT INFORMATION
  Report Type: Report from Study
  Country: US (occurrence: US)
  Receive Date: 20140428
  Receipt Date: 20170425
  Transmission Date: 20170829
  Serious: Yes (Other)
  Sender: FDA-Public Use
  Company Number: US-ROCHE-1386796

PATIENT

DRUGS (3)
  1. PACLITAXEL. [Suspect]
     Active Substance: PACLITAXEL
     Indication: NON-SMALL CELL LUNG CANCER
     Route: 042
  2. BEVACIZUMAB [Suspect]
     Active Substance: BEVACIZUMAB
     Indication: NON-SMALL CELL LUNG CANCER
     Route: 042
  3. CARBOPLATIN. [Suspect]
     Active Substance: CARBOPLATIN
     Indication: NON-SMALL CELL LUNG CANCER
     Dosage: 6 AUC
     Route: 042

REACTIONS (29)
  - Thrombosis [Unknown]
  - Myocardial ischaemia [Unknown]
  - Hyponatraemia [Unknown]
  - Embolism [Unknown]
  - Nausea [Unknown]
  - Diarrhoea [Unknown]
  - Muscular weakness [Unknown]
  - Arthralgia [Unknown]
  - Hypertension [Unknown]
  - Anaemia [Unknown]
  - Thrombocytopenia [Unknown]
  - Leukopenia [Unknown]
  - Left ventricular dysfunction [Unknown]
  - Pericarditis [Unknown]
  - Thrombosis in device [Unknown]
  - Hyperglycaemia [Unknown]
  - Hypersensitivity [Unknown]
  - Troponin T increased [Unknown]
  - Renal failure [Unknown]
  - Back pain [Unknown]
  - Hyperkalaemia [Unknown]
  - Confusional state [Unknown]
  - Blood creatinine increased [Unknown]
  - Febrile neutropenia [Unknown]
  - Peripheral sensory neuropathy [Unknown]
  - Fatigue [Unknown]
  - Vomiting [Unknown]
  - Nervous system disorder [Unknown]
  - Neutropenia [Unknown]
